FAERS Safety Report 26189634 (Version 1)
Quarter: 2025Q4

REPORT INFORMATION
  Report Type: Spontaneous
  Country: JP (occurrence: JP)
  Receive Date: 20251223
  Receipt Date: 20251223
  Transmission Date: 20260117
  Serious: Yes (Life-Threatening, Other)
  Sender: ESTEVE
  Company Number: JP-Esteve Pharmaceuticals SA-2191161

PATIENT
  Age: 82 Year
  Sex: Male

DRUGS (11)
  1. METOPIRONE [Suspect]
     Active Substance: METYRAPONE
     Indication: Product used for unknown indication
     Route: 061
     Dates: start: 20251029
  2. ROXADUSTAT [Concomitant]
     Active Substance: ROXADUSTAT
     Dates: end: 20251101
  3. LEVOTHYROXINE [Concomitant]
     Active Substance: LEVOTHYROXINE
  4. ENTRESTO [Concomitant]
     Active Substance: SACUBITRIL\VALSARTAN
  5. VERQUVO [Concomitant]
     Active Substance: VERICIGUAT
  6. JARDIANCE [Concomitant]
     Active Substance: EMPAGLIFLOZIN
  7. PRASUGREL HYDROCHLORIDE [Concomitant]
     Active Substance: PRASUGREL HYDROCHLORIDE
  8. FAMOTIDINE [Concomitant]
     Active Substance: FAMOTIDINE
  9. CARVEDILOL [Concomitant]
     Active Substance: CARVEDILOL
  10. LIMAPROST [Concomitant]
     Active Substance: LIMAPROST
  11. IFENPRODIL [Concomitant]
     Active Substance: IFENPRODIL

REACTIONS (1)
  - Ischaemic hepatitis [Recovered/Resolved]

NARRATIVE: CASE EVENT DATE: 20251101
